FAERS Safety Report 25802643 (Version 1)
Quarter: 2025Q3

REPORT INFORMATION
  Report Type: Spontaneous
  Country: US (occurrence: None)
  Receive Date: 20250914
  Receipt Date: 20250914
  Transmission Date: 20251021
  Serious: Yes (Hospitalization)
  Sender: FDA-CTU
  Company Number: None

PATIENT
  Age: 40 Year
  Sex: Female
  Weight: 80.3 kg

DRUGS (1)
  1. XELODA [Suspect]
     Active Substance: CAPECITABINE
     Dates: start: 20250805, end: 20250902

REACTIONS (3)
  - Inflammatory bowel disease [None]
  - Hypokalaemia [None]
  - Therapy interrupted [None]

NARRATIVE: CASE EVENT DATE: 20250902
